FAERS Safety Report 4737873-9 (Version None)
Quarter: 2005Q3

REPORT INFORMATION
  Report Type: 
  Country: None (occurrence: None)
  Receive Date: 20050802
  Receipt Date: 20050719
  Transmission Date: 20060218
  Serious: Yes (Other)
  Sender: FDA-Public Use
  Company Number: 2005-BP-12237RO

PATIENT
  Age: 42 Year
  Sex: Male
  Weight: 80 kg

DRUGS (10)
  1. CYCLOPHOSPHAMIDE [Suspect]
     Indication: TESTIS CANCER
     Dosage: 1500 MG/M2/DAY OVER 1 HOURS PER CYCLE (1 IN 28 D), IV
     Route: 042
  2. THIOTEPA [Suspect]
     Indication: TESTIS CANCER
     Dosage: 120 MG/M2/DAY IN TWO 30 MINUTE INFUSIONS 12 HOURS APART PER CYCLE (1 IN 28 D), IV
     Route: 042
  3. CARBOPLATIN [Suspect]
     Indication: TESTIS CANCER
     Dosage: (1 IN 28 D), IV
     Route: 042
  4. PHENYTOIN [Suspect]
     Indication: CONVULSION
     Dosage: 300 MG (150 MG)
  5. MESNA [Concomitant]
  6. DEXAMETHASONE [Concomitant]
  7. GRANISETRON (GRANISETRON) [Concomitant]
  8. RANITIDINE [Concomitant]
  9. FYTOMENADION (PHYTOMENADIONE) [Concomitant]
  10. FOLIC ACID [Concomitant]

REACTIONS (8)
  - CONVULSION [None]
  - DIARRHOEA [None]
  - DRUG CLEARANCE INCREASED [None]
  - DRUG INTERACTION [None]
  - DRUG LEVEL BELOW THERAPEUTIC [None]
  - MUCOSAL INFLAMMATION [None]
  - SCAR [None]
  - STEM CELL TRANSPLANT [None]
